FAERS Safety Report 19570372 (Version 1)
Quarter: 2021Q3

REPORT INFORMATION
  Report Type: Other
  Country: CN (occurrence: CN)
  Receive Date: 20210716
  Receipt Date: 20210716
  Transmission Date: 20211014
  Serious: Yes (Other)
  Sender: FDA-Public Use
  Company Number: CN-ROCHE-2872167

PATIENT

DRUGS (5)
  1. PEMETREXED. [Suspect]
     Active Substance: PEMETREXED
     Indication: NON-SMALL CELL LUNG CANCER
     Route: 065
  2. ICOTINIB [Suspect]
     Active Substance: ICOTINIB
     Indication: NON-SMALL CELL LUNG CANCER
     Route: 065
  3. GEFITINIB. [Suspect]
     Active Substance: GEFITINIB
     Indication: NON-SMALL CELL LUNG CANCER
     Route: 065
  4. BEVACIZUMAB. [Suspect]
     Active Substance: BEVACIZUMAB
     Indication: NON-SMALL CELL LUNG CANCER
     Route: 065
  5. ERLOTINIB [Suspect]
     Active Substance: ERLOTINIB
     Indication: NON-SMALL CELL LUNG CANCER
     Route: 048

REACTIONS (9)
  - Hypertension [Unknown]
  - Rash [Unknown]
  - Embolism [Unknown]
  - Hepatotoxicity [Unknown]
  - Leukopenia [Unknown]
  - Fatigue [Unknown]
  - Drug resistance [Unknown]
  - Neutropenia [Unknown]
  - Diarrhoea [Unknown]
